FAERS Safety Report 16517719 (Version 1)
Quarter: 2019Q3

REPORT INFORMATION
  Report Type: Spontaneous
  Country: US (occurrence: US)
  Receive Date: 20190522
  Receipt Date: 20190522
  Transmission Date: 20191004
  Serious: Yes (Hospitalization)
  Sender: FDA-Public Use
  Company Number: None

PATIENT
  Age: 72 Year
  Sex: Male
  Weight: 83.01 kg

DRUGS (29)
  1. TRIAMCINOLONE [Concomitant]
     Active Substance: TRIAMCINOLONE
  2. VITAMIN D3 [Concomitant]
     Active Substance: CHOLECALCIFEROL
  3. MAGNESIUM CITRATE. [Concomitant]
     Active Substance: MAGNESIUM CITRATE
  4. DIPHENOXYLATE ATROPINE [Concomitant]
  5. OMEPRAZOLE. [Concomitant]
     Active Substance: OMEPRAZOLE
  6. SPIRONOLACTONE. [Concomitant]
     Active Substance: SPIRONOLACTONE
  7. ASPIRIN. [Concomitant]
     Active Substance: ASPIRIN
  8. INSULIN ASPART [Concomitant]
     Active Substance: INSULIN ASPART
  9. GLARGINE INSULIN [Concomitant]
     Active Substance: INSULIN GLARGINE
  10. CLOBETASOL [Concomitant]
     Active Substance: CLOBETASOL
  11. NIACIN. [Concomitant]
     Active Substance: NIACIN
  12. CREON [Concomitant]
     Active Substance: PANCRELIPASE AMYLASE\PANCRELIPASE LIPASE\PANCRELIPASE PROTEASE
  13. IBUPROFEN. [Concomitant]
     Active Substance: IBUPROFEN
  14. COQ10 [Concomitant]
     Active Substance: UBIDECARENONE
  15. VITAMIN C [Concomitant]
     Active Substance: ASCORBIC ACID
  16. LASIX [Concomitant]
     Active Substance: FUROSEMIDE
  17. ADRUCIL [Suspect]
     Active Substance: FLUOROURACIL
     Indication: PANCREATIC CARCINOMA
     Dosage: 1400 MG 5 DAYS A WEEK CADD PUMP
     Dates: start: 20190403, end: 20190511
  18. LOPERAMIDE [Concomitant]
     Active Substance: LOPERAMIDE
  19. METOPROLOL. [Concomitant]
     Active Substance: METOPROLOL
  20. APIXIBAN [Concomitant]
     Active Substance: APIXABAN
  21. MULTIVITAMIN [Concomitant]
     Active Substance: VITAMINS
  22. ATORVASTATIN [Concomitant]
     Active Substance: ATORVASTATIN
  23. FISH OIL [Concomitant]
     Active Substance: FISH OIL
  24. AMMONIUM LACTATE. [Concomitant]
     Active Substance: AMMONIUM LACTATE
  25. METHOTREXATE. [Concomitant]
     Active Substance: METHOTREXATE
  26. FOLIC ACID. [Concomitant]
     Active Substance: FOLIC ACID
  27. RAMIPRIL. [Concomitant]
     Active Substance: RAMIPRIL
  28. VITAMIN E [Concomitant]
     Active Substance: .ALPHA.-TOCOPHEROL
  29. VITAMIN B COMPLEX [Concomitant]
     Active Substance: CYANOCOBALAMIN\DEXPANTHENOL\NIACINAMIDE\PYRIDOXINE HYDROCHLORIDE\RIBOFLAVIN 5^-PHOSPHATE SODIUM\THIAMINE HYDROCHLORIDE\VITAMIN B COMPLEX

REACTIONS (6)
  - Fall [None]
  - Diarrhoea [None]
  - Presyncope [None]
  - Hypophagia [None]
  - Blood creatinine increased [None]
  - Dehydration [None]

NARRATIVE: CASE EVENT DATE: 20190514
